FAERS Safety Report 5530375-1 (Version None)
Quarter: 2007Q4

REPORT INFORMATION
  Report Type: 
  Country: None (occurrence: None)
  Receive Date: 20071127
  Receipt Date: 20071119
  Transmission Date: 20080405
  Serious: Yes (Death, Hospitalization)
  Sender: FDA-Public Use
  Company Number: 2007002001

PATIENT
  Age: 65 Year

DRUGS (5)
  1. ERLOTINIB (ERLOTINIB HC1) (TABLET) (ERLOTINIB HC1) [Suspect]
     Indication: LUNG NEOPLASM MALIGNANT
     Dosage: 150 MG, QD, ORAL
     Route: 048
     Dates: start: 20061023, end: 20061116
  2. SYMBICORT (SYMBICORT) [Concomitant]
  3. HYOSCINE HBR HYT [Concomitant]
  4. CEPHALEXIN [Concomitant]
  5. METRONIDAZOLE (METONIDAZOLE) [Concomitant]

REACTIONS (4)
  - DIARRHOEA [None]
  - LUNG NEOPLASM MALIGNANT [None]
  - MALIGNANT NEOPLASM PROGRESSION [None]
  - SUPERIOR VENA CAVAL OCCLUSION [None]
